FAERS Safety Report 10338194 (Version 1)
Quarter: 2014Q3

REPORT INFORMATION
  Report Type: Spontaneous
  Country: US (occurrence: US)
  Receive Date: 20140724
  Receipt Date: 20140724
  Transmission Date: 20150326
  Serious: Yes (Hospitalization, Other)
  Sender: FDA-Public Use
  Company Number: US-ELI_LILLY_AND_COMPANY-US201407005106

PATIENT
  Age: 62 Year

DRUGS (3)
  1. AXIRON [Suspect]
     Active Substance: TESTOSTERONE
     Indication: BLOOD TESTOSTERONE DECREASED
     Dosage: 60 MG, UNKNOWN
     Route: 065
     Dates: start: 201402
  2. OXYCODONE [Concomitant]
     Active Substance: OXYCODONE
     Dosage: 10 MG, TID
     Route: 065
  3. MORPHINE SULFATE. [Concomitant]
     Active Substance: MORPHINE SULFATE
     Dosage: 30 MG, EVERY 8 HRS
     Route: 065

REACTIONS (4)
  - Pain [Not Recovered/Not Resolved]
  - Device breakage [Unknown]
  - Cellulitis [Unknown]
  - Somnolence [Unknown]

NARRATIVE: CASE EVENT DATE: 20140603
